FAERS Safety Report 25346094 (Version 3)
Quarter: 2025Q3

REPORT INFORMATION
  Report Type: Report from Study
  Country: US (occurrence: US)
  Receive Date: 20250522
  Receipt Date: 20250708
  Transmission Date: 20251021
  Serious: Yes (Hospitalization, Other)
  Sender: SUNOVION
  Company Number: US-SMPA-2025SPA006215

PATIENT

DRUGS (2)
  1. ORGOVYX [Suspect]
     Active Substance: RELUGOLIX
     Indication: Prostate cancer
     Route: 048
     Dates: start: 20250519
  2. ORGOVYX [Suspect]
     Active Substance: RELUGOLIX
     Dosage: 120 MG, QD
     Route: 048
     Dates: start: 20250520

REACTIONS (10)
  - Loss of consciousness [Unknown]
  - Blood glucose increased [Unknown]
  - Diabetic coma [Unknown]
  - Seizure [Unknown]
  - Joint swelling [Unknown]
  - Pain in extremity [Unknown]
  - Oral pain [Unknown]
  - Incontinence [Unknown]
  - Fluid retention [Unknown]
  - Diarrhoea [Unknown]
